FAERS Safety Report 16791812 (Version 2)
Quarter: 2020Q3

REPORT INFORMATION
  Report Type: Report from Study
  Country: GB (occurrence: GB)
  Receive Date: 20190910
  Receipt Date: 20200929
  Transmission Date: 20201102
  Serious: Yes (Hospitalization)
  Sender: FDA-Public Use
  Company Number: GB-PFIZER INC-2019383699

PATIENT
  Age: 75 Year
  Sex: Female

DRUGS (27)
  1. TRASTUZUMAB/VORHYALURONIDASE ALFA [Suspect]
     Active Substance: HYALURONIDASE (HUMAN RECOMBINANT)\TRASTUZUMAB
     Indication: HER2 POSITIVE BREAST CANCER
     Dosage: 600 MG, 3/WEEK
     Route: 058
     Dates: start: 20161013, end: 20180130
  2. TRASTUZUMAB/VORHYALURONIDASE ALFA [Suspect]
     Active Substance: HYALURONIDASE (HUMAN RECOMBINANT)\TRASTUZUMAB
     Dosage: 600 MG, 3/WEEK
     Route: 058
     Dates: start: 20180718
  3. GABAPENTIN. [Concomitant]
     Active Substance: GABAPENTIN
     Dosage: 300 MG, 3X/DAY
     Route: 048
     Dates: start: 20160913
  4. HALOPERIDOL. [Concomitant]
     Active Substance: HALOPERIDOL
     Indication: SPINAL PAIN
     Dosage: 1.5 MG, 2X/DAY
     Route: 048
     Dates: start: 20181102, end: 20181108
  5. DOCUSATE SODIUM. [Concomitant]
     Active Substance: DOCUSATE SODIUM
     Indication: CONSTIPATION
     Dosage: 200 MG, 2X/DAY
     Route: 048
     Dates: start: 20181102
  6. GLYCEROL [Concomitant]
     Active Substance: GLYCERIN
     Indication: CONSTIPATION
     Dosage: 4 G
     Route: 054
     Dates: start: 20181029, end: 20181030
  7. METOCLOPRAMIDE. [Concomitant]
     Active Substance: METOCLOPRAMIDE
     Indication: NAUSEA
     Dosage: 10 MG, 3X/DAY
     Route: 048
     Dates: start: 20190124
  8. PACLITAXEL. [Suspect]
     Active Substance: PACLITAXEL
     Indication: HER2 POSITIVE BREAST CANCER
     Dosage: 162 MG, UNK
     Route: 042
     Dates: start: 20180921, end: 20181025
  9. ZOLEDRONIC ACID [Concomitant]
     Active Substance: ZOLEDRONIC ACID
     Indication: BONE PAIN
  10. PACLITAXEL. [Suspect]
     Active Substance: PACLITAXEL
     Dosage: 120 MG, UNK
     Route: 042
     Dates: start: 20181108, end: 20190225
  11. LANSOPRAZOLE. [Concomitant]
     Active Substance: LANSOPRAZOLE
     Indication: PROPHYLAXIS
     Dosage: 30 MG, DAILY
     Route: 048
     Dates: start: 20181106
  12. LIDOCAINE. [Concomitant]
     Active Substance: LIDOCAINE
     Dosage: 700 MG
     Route: 061
     Dates: start: 20181108
  13. AROMASIN [Suspect]
     Active Substance: EXEMESTANE
     Indication: HER2 POSITIVE BREAST CANCER
     Dosage: 25 MG, DAILY
     Route: 048
     Dates: start: 20161122
  14. CALCICHEW?D3 FORTE [Concomitant]
     Active Substance: CALCIUM\CHOLECALCIFEROL
     Dosage: 2 DF, DAILY
     Route: 048
     Dates: start: 20160917
  15. MACROGOL [Concomitant]
     Active Substance: POLYETHYLENE GLYCOLS
     Dosage: 2 DF, 2X/DAY FORM=SACHET
     Route: 048
     Dates: start: 20160913
  16. CAPECITABINE. [Suspect]
     Active Substance: CAPECITABINE
     Indication: HER2 POSITIVE BREAST CANCER
     Dosage: 500 MG, UNK
     Route: 048
     Dates: start: 20180227, end: 20180731
  17. DOMPERIDONE [Concomitant]
     Active Substance: DOMPERIDONE
     Indication: NAUSEA
     Dosage: 10 MG, 3X/DAY
     Route: 048
     Dates: start: 20181108
  18. MORPHINE SULPHATE [Concomitant]
     Active Substance: MORPHINE SULFATE
     Indication: SPINAL PAIN
     Dosage: 5 MG, PRN
     Route: 048
     Dates: start: 20160913
  19. DEXAMETHASONE. [Concomitant]
     Active Substance: DEXAMETHASONE
     Indication: SPINAL PAIN
     Dosage: 4 MG, 1X/DAY
     Route: 048
     Dates: start: 20181102
  20. DEXAMETHASONE. [Concomitant]
     Active Substance: DEXAMETHASONE
     Indication: NAUSEA
  21. NAPROXEN. [Concomitant]
     Active Substance: NAPROXEN
     Dosage: 500 MG, 2X/DAY
     Route: 048
     Dates: start: 20160902
  22. PARACETAMOL [Concomitant]
     Active Substance: ACETAMINOPHEN
     Dosage: 4 G, DAILY
     Route: 048
     Dates: start: 20160913
  23. MORPHINE SULPHATE [Concomitant]
     Active Substance: MORPHINE SULFATE
     Dosage: 15 MG, 2X/DAY
     Route: 048
     Dates: start: 20181102
  24. ZOLEDRONIC ACID [Concomitant]
     Active Substance: ZOLEDRONIC ACID
     Indication: METASTASES TO BONE
     Dosage: 3.5 MG, MONTHLY
     Route: 042
     Dates: start: 20160920
  25. OMEPRAZOLE. [Concomitant]
     Active Substance: OMEPRAZOLE
     Indication: PROPHYLAXIS
     Dosage: 40 MG, DAILY
     Route: 048
     Dates: start: 20160902
  26. NERATINIB [Suspect]
     Active Substance: NERATINIB
     Indication: HER2 POSITIVE BREAST CANCER
     Dosage: 240 MG DAILY
     Route: 048
     Dates: start: 20190226, end: 20190227
  27. LEVOTHYROXINE. [Concomitant]
     Active Substance: LEVOTHYROXINE
     Dosage: 175 MG, DAILY
     Route: 048
     Dates: start: 20030924

REACTIONS (6)
  - Diarrhoea [Recovered/Resolved]
  - Blood phosphorus decreased [Recovered/Resolved]
  - Decreased appetite [Recovered/Resolved]
  - Vomiting [Recovered/Resolved]
  - Diarrhoea [Recovered/Resolved]
  - Nausea [Not Recovered/Not Resolved]

NARRATIVE: CASE EVENT DATE: 201803
